FAERS Safety Report 5172391-8 (Version None)
Quarter: 2006Q4

REPORT INFORMATION
  Report Type: 
  Country: None (occurrence: None)
  Receive Date: 20061213
  Receipt Date: 20061211
  Transmission Date: 20070319
  Serious: Yes (Other)
  Sender: FDA-Public Use
  Company Number: GB-MERCK-0612GBR00044

PATIENT
  Sex: Female

DRUGS (3)
  1. FOSAMAX [Suspect]
     Route: 048
     Dates: start: 20060101, end: 20061101
  2. PHENOBARBITAL [Concomitant]
     Indication: EPILEPSY
     Route: 065
  3. VALPROATE SODIUM [Concomitant]
     Route: 065

REACTIONS (1)
  - COMPLEX PARTIAL SEIZURES [None]
